FAERS Safety Report 14367308 (Version 3)
Quarter: 2018Q1

REPORT INFORMATION
  Report Type: Report from Study
  Country: US (occurrence: US)
  Receive Date: 20180109
  Receipt Date: 20180309
  Transmission Date: 20180509
  Serious: Yes (Hospitalization)
  Sender: FDA-Public Use
  Company Number: US-PFIZER INC-2017492534

PATIENT
  Age: 66 Year
  Sex: Male

DRUGS (1)
  1. SUTENT [Suspect]
     Active Substance: SUNITINIB MALATE
     Indication: RENAL CELL CARCINOMA
     Dosage: 50 MG, DAILY
     Route: 048
     Dates: start: 20171104

REACTIONS (18)
  - Blood pressure abnormal [Unknown]
  - Blood pressure increased [Unknown]
  - Epistaxis [Unknown]
  - Eating disorder symptom [Unknown]
  - Peripheral swelling [Unknown]
  - Diarrhoea [Unknown]
  - Nausea [Unknown]
  - Asthenia [Unknown]
  - Fatigue [Recovering/Resolving]
  - Swelling face [Unknown]
  - Stomatitis [Unknown]
  - Faecal volume increased [Unknown]
  - Dysgeusia [Not Recovered/Not Resolved]
  - Skin discolouration [Unknown]
  - Pyrexia [Unknown]
  - Hyperhidrosis [Unknown]
  - Abdominal pain [Unknown]
  - Dizziness [Unknown]

NARRATIVE: CASE EVENT DATE: 201711
